FAERS Safety Report 24195191 (Version 2)
Quarter: 2024Q4

REPORT INFORMATION
  Report Type: Report from Study
  Country: CA (occurrence: CA)
  Receive Date: 20240809
  Receipt Date: 20241116
  Transmission Date: 20250115
  Serious: Yes (Life-Threatening, Hospitalization, Other)
  Sender: ALEXION PHARMACEUTICALS
  Company Number: 2024A178758

PATIENT
  Age: 32 Year

DRUGS (4)
  1. SAPHNELO [Suspect]
     Active Substance: ANIFROLUMAB-FNIA
     Indication: Systemic lupus erythematosus
     Dosage: 300 MILLIGRAM, UNK, FREQUENCY: Q4WK
  2. SAPHNELO [Suspect]
     Active Substance: ANIFROLUMAB-FNIA
     Indication: Autoantibody positive
     Dosage: 300 MILLIGRAM, UNK, FREQUENCY: Q4WK
  3. SAPHNELO [Suspect]
     Active Substance: ANIFROLUMAB-FNIA
     Dosage: 300 MILLIGRAM, UNK, FREQUENCY: Q4WK
  4. SAPHNELO [Suspect]
     Active Substance: ANIFROLUMAB-FNIA
     Dosage: 300 MILLIGRAM, UNK, FREQUENCY: Q4WK

REACTIONS (4)
  - Cardiogenic shock [Unknown]
  - Cardiac failure [Unknown]
  - Blood potassium abnormal [Recovering/Resolving]
  - Inappropriate schedule of product administration [Unknown]
